FAERS Safety Report 8276013-9 (Version None)
Quarter: 2012Q2

REPORT INFORMATION
  Report Type: 
  Country: None (occurrence: None)
  Receive Date: 20120410
  Receipt Date: 20120410
  Transmission Date: 20120825
  Serious: No
  Sender: FDA-Public Use
  Company Number: None

PATIENT
  Sex: Male

DRUGS (1)
  1. VANCOMYCIN HYCHLORIDE [Suspect]

REACTIONS (3)
  - RENAL FAILURE ACUTE [None]
  - HAEMODIALYSIS [None]
  - MEDICATION ERROR [None]
